FAERS Safety Report 17057933 (Version 2)
Quarter: 2019Q4

REPORT INFORMATION
  Report Type: Spontaneous
  Country: SE (occurrence: SE)
  Receive Date: 20191121
  Receipt Date: 20191202
  Transmission Date: 20200122
  Serious: Yes (Life-Threatening, Other)
  Sender: FDA-Public Use
  Company Number: SE-PFIZER INC-2019497621

PATIENT
  Age: 54 Year
  Sex: Male
  Weight: 61 kg

DRUGS (7)
  1. BETAPRED [Concomitant]
     Active Substance: BETAMETHASONE SODIUM PHOSPHATE
     Dosage: 1 MG, 1X/DAY (0.5 MG 2X1)
  2. INLYTA [Suspect]
     Active Substance: AXITINIB
     Indication: METASTATIC RENAL CELL CARCINOMA
     Dosage: 5 MG, 2X/DAY
     Route: 048
     Dates: start: 20190920, end: 20191027
  3. OXYCONTIN [Concomitant]
     Active Substance: OXYCODONE HYDROCHLORIDE
     Dosage: 5 MG, 2X/DAY
  4. CANDESARSTAD [Concomitant]
     Dosage: 8 MG, 1X/DAY
  5. GABAPENTIN. [Concomitant]
     Active Substance: GABAPENTIN
     Dosage: 600 MG, 3X/DAY (300 MG 2X3)
  6. OMEPRAZOL [Concomitant]
     Active Substance: OMEPRAZOLE
     Dosage: 20 MG, 1X/DAY
  7. PLENDIL [Concomitant]
     Active Substance: FELODIPINE
     Dosage: 10 MG, 1X/DAY

REACTIONS (6)
  - Small intestine ulcer [Recovered/Resolved]
  - Small intestinal perforation [Recovered/Resolved]
  - Peritonitis [Recovered/Resolved]
  - Pulmonary embolism [Recovered/Resolved]
  - Neoplasm progression [Unknown]
  - Pneumonia aspiration [Recovered/Resolved]

NARRATIVE: CASE EVENT DATE: 20191027
